FAERS Safety Report 9619585 (Version 1)
Quarter: 2013Q4

REPORT INFORMATION
  Report Type: Spontaneous
  Country: IT (occurrence: IT)
  Receive Date: 20131014
  Receipt Date: 20131014
  Transmission Date: 20140711
  Serious: Yes (Life-Threatening)
  Sender: FDA-Public Use
  Company Number: IT-BAYER-2013-123884

PATIENT
  Age: 91 Year
  Sex: Female

DRUGS (5)
  1. CARDIOASPIRIN [Suspect]
     Indication: HYPERTENSIVE HEART DISEASE
     Dosage: DAILY DOSE 1 DF
     Route: 048
     Dates: start: 20100903, end: 20130806
  2. METFORMIN [Concomitant]
  3. LASIX [Concomitant]
     Dosage: UNK
  4. GLICOBASE [Concomitant]
     Dosage: UNK
  5. PANTORC [Concomitant]
     Dosage: UNK

REACTIONS (1)
  - Anaemia [Recovering/Resolving]
